FAERS Safety Report 24323836 (Version 1)
Quarter: 2024Q3

REPORT INFORMATION
  Report Type: Spontaneous
  Country: SE (occurrence: SE)
  Receive Date: 20240916
  Receipt Date: 20240916
  Transmission Date: 20241017
  Serious: Yes (Other)
  Sender: Atnahs Healthcare
  Company Number: None

PATIENT
  Age: 71 Year
  Sex: Male

DRUGS (4)
  1. NAPROXEN [Suspect]
     Active Substance: NAPROXEN
     Indication: Synovial cyst
     Dates: start: 202405, end: 20240616
  2. LERCANIDIPINE HYDROCHLORIDE [Concomitant]
     Active Substance: LERCANIDIPINE HYDROCHLORIDE
     Indication: Product used for unknown indication
     Dates: start: 20211221
  3. ACETAMINOPHEN [Concomitant]
     Active Substance: ACETAMINOPHEN
     Indication: Product used for unknown indication
  4. ENALAPRIL [Concomitant]
     Active Substance: ENALAPRIL
     Indication: Product used for unknown indication
     Dates: start: 20221123

REACTIONS (8)
  - Chills [Recovering/Resolving]
  - Fatigue [Recovering/Resolving]
  - Atrial fibrillation [Recovering/Resolving]
  - Decreased appetite [Recovering/Resolving]
  - Arthralgia [Recovering/Resolving]
  - Pyrexia [Recovered/Resolved]
  - Hepatic enzyme increased [Recovering/Resolving]
  - Rash [Recovered/Resolved]

NARRATIVE: CASE EVENT DATE: 20240601
